FAERS Safety Report 15056809 (Version 1)
Quarter: 2018Q2

REPORT INFORMATION
  Report Type: Spontaneous
  Country: US (occurrence: US)
  Receive Date: 20180604
  Receipt Date: 20180604
  Transmission Date: 20180711
  Serious: No
  Sender: FDA-Public Use
  Company Number: None

PATIENT
  Age: 67 Year
  Sex: Female

DRUGS (4)
  1. XGEVA [Concomitant]
     Active Substance: DENOSUMAB
  2. AFINITOR [Concomitant]
     Active Substance: EVEROLIMUS
  3. IBRANCE [Suspect]
     Active Substance: PALBOCICLIB
  4. AROMASIN [Concomitant]
     Active Substance: EXEMESTANE

REACTIONS (1)
  - Disease progression [None]

NARRATIVE: CASE EVENT DATE: 20180604
